FAERS Safety Report 6263755-X (Version None)
Quarter: 2009Q3

REPORT INFORMATION
  Report Type: 
  Country: None (occurrence: None)
  Receive Date: 20090707
  Receipt Date: 20090707
  Transmission Date: 20100115
  Serious: Yes (Other)
  Sender: FDA-Public Use
  Company Number: None

PATIENT
  Sex: Female
  Weight: 104.3273 kg

DRUGS (1)
  1. ZICAM NASAL GELSWABS [Suspect]
     Indication: NASOPHARYNGITIS
     Dosage: SWAB 1 TUBE EVERY 4 HRS NASAL - USED BEFORE PREGNANCY
     Route: 045

REACTIONS (8)
  - AGEUSIA [None]
  - ANOSMIA [None]
  - DECREASED APPETITE [None]
  - DECREASED INTEREST [None]
  - HYPOGEUSIA [None]
  - HYPOSMIA [None]
  - NASOPHARYNGITIS [None]
  - PRODUCT QUALITY ISSUE [None]
